FAERS Safety Report 9164769 (Version 2)
Quarter: 2013Q2

REPORT INFORMATION
  Report Type: Spontaneous
  Country: US (occurrence: US)
  Receive Date: 20130315
  Receipt Date: 20130418
  Transmission Date: 20140414
  Serious: Yes (Other)
  Sender: FDA-Public Use
  Company Number: US-PFIZER INC-2013085423

PATIENT
  Age: 60 Year
  Sex: Female
  Weight: 53.06 kg

DRUGS (2)
  1. NEURONTIN [Suspect]
     Indication: PAIN
     Dosage: 300 MG, 1X/DAY
     Route: 048
     Dates: start: 201207, end: 201302
  2. MS-CONTIN [Concomitant]
     Dosage: UNK, 3X/DAY

REACTIONS (2)
  - Spinal column stenosis [Unknown]
  - Dyskinesia [Not Recovered/Not Resolved]
